FAERS Safety Report 14445618 (Version 2)
Quarter: 2020Q1

REPORT INFORMATION
  Report Type: Spontaneous
  Country: US (occurrence: US)
  Receive Date: 20180126
  Receipt Date: 20200206
  Transmission Date: 20200409
  Serious: No
  Sender: FDA-Public Use
  Company Number: US-ABBVIE-17K-163-2069610-00

PATIENT

DRUGS (1)
  1. HUMIRA [Suspect]
     Active Substance: ADALIMUMAB
     Indication: HIDRADENITIS
     Route: 058

REACTIONS (7)
  - Limb injury [Unknown]
  - Wound complication [Unknown]
  - Hidradenitis [Unknown]
  - Dry skin [Unknown]
  - Hyperhidrosis [Unknown]
  - Furuncle [Unknown]
  - Scar [Unknown]
